FAERS Safety Report 12979315 (Version 1)
Quarter: 2016Q4

REPORT INFORMATION
  Report Type: Spontaneous
  Country: US (occurrence: US)
  Receive Date: 20161128
  Receipt Date: 20161128
  Transmission Date: 20170207
  Serious: Yes (Other)
  Sender: FDA-Public Use
  Company Number: US-PFIZER INC-2016541119

PATIENT

DRUGS (1)
  1. DYLOJECT [Suspect]
     Active Substance: DICLOFENAC SODIUM
     Dosage: UNK
     Route: 042
     Dates: start: 20161116

REACTIONS (4)
  - Drug interaction [Unknown]
  - Haemorrhage [Unknown]
  - Device occlusion [Unknown]
  - Product deposit [Unknown]

NARRATIVE: CASE EVENT DATE: 20161116
